FAERS Safety Report 10722979 (Version 2)
Quarter: 2015Q1

REPORT INFORMATION
  Report Type: Spontaneous
  Country: IT (occurrence: None)
  Receive Date: 20150114
  Receipt Date: 20150122
  Transmission Date: 20150721
  Serious: Yes (Other)
  Sender: FDA-Public Use
  Company Number: 2694926

PATIENT
  Age: 68 Year
  Sex: Female

DRUGS (7)
  1. DECADRON [Concomitant]
     Active Substance: DEXAMETHASONE
  2. ZOFRAN [Concomitant]
     Active Substance: ONDANSETRON HYDROCHLORIDE
  3. RANITIDINE [Concomitant]
     Active Substance: RANITIDINE\RANITIDINE HYDROCHLORIDE
  4. ERBITUX [Concomitant]
     Active Substance: CETUXIMAB
  5. FLUOROURACIL. [Concomitant]
     Active Substance: FLUOROURACIL
  6. OXALIPLATIN. [Suspect]
     Active Substance: OXALIPLATIN
     Indication: PRODUCT USED FOR UNKNOWN INDICATION
     Dosage: 100 MG (MILIGRAM(S), CYCLICAL , INTRAVENOUS
     Route: 041
     Dates: start: 20140924, end: 20141229
  7. LEDERFOLIN [Concomitant]
     Active Substance: LEUCOVORIN CALCIUM

REACTIONS (3)
  - Feeling hot [None]
  - Hypotension [None]
  - Abdominal pain [None]

NARRATIVE: CASE EVENT DATE: 20141229
